FAERS Safety Report 23619594 (Version 1)
Quarter: 2024Q1

REPORT INFORMATION
  Report Type: Spontaneous
  Country: GB (occurrence: GB)
  Receive Date: 20240312
  Receipt Date: 20240312
  Transmission Date: 20240410
  Serious: Yes (Other)
  Sender: FDA-Public Use
  Company Number: None

PATIENT
  Sex: Female

DRUGS (2)
  1. METRONIDAZOLE [Suspect]
     Active Substance: METRONIDAZOLE
     Dosage: UNK
     Route: 065
  2. NYSTATIN [Suspect]
     Active Substance: NYSTATIN
     Dosage: UNK
     Route: 065

REACTIONS (1)
  - Vaginal haemorrhage [Not Recovered/Not Resolved]
